FAERS Safety Report 9072662 (Version 1)
Quarter: 2013Q1

REPORT INFORMATION
  Report Type: Report from Study
  Country: US (occurrence: US)
  Receive Date: 20130129
  Receipt Date: 20130129
  Transmission Date: 20140127
  Serious: No
  Sender: FDA-Public Use
  Company Number: US-ABBOTT-12P-163-0932253-00

PATIENT
  Age: 39 Year
  Sex: Male

DRUGS (10)
  1. HUMIRA 40 MG/0.8 ML PEN [Suspect]
     Indication: ANKYLOSING SPONDYLITIS
     Dates: start: 2006, end: 201011
  2. HUMIRA 40 MG/0.8 ML PEN [Suspect]
     Dosage: UNKNOWN
     Dates: start: 201111
  3. HUMIRA 40 MG/0.8 ML PEN [Suspect]
  4. NASONEX [Concomitant]
     Indication: SINUS CONGESTION
     Route: 055
  5. BROMELAIN [Concomitant]
     Indication: ARTHRITIS
  6. B COMPLEX [Concomitant]
     Indication: PRODUCT USED FOR UNKNOWN INDICATION
  7. VIT D3 [Concomitant]
     Indication: PRODUCT USED FOR UNKNOWN INDICATION
  8. QUERCETIN [Concomitant]
     Indication: SEASONAL ALLERGY
  9. FISH OIL [Concomitant]
     Indication: PRODUCT USED FOR UNKNOWN INDICATION
  10. TYLENOL [Concomitant]
     Indication: PRODUCT USED FOR UNKNOWN INDICATION
     Dosage: AS NEEDED

REACTIONS (8)
  - Arthritis [Not Recovered/Not Resolved]
  - Fall [Not Recovered/Not Resolved]
  - Arthralgia [Not Recovered/Not Resolved]
  - Joint swelling [Not Recovered/Not Resolved]
  - Joint swelling [Not Recovered/Not Resolved]
  - Pain in extremity [Not Recovered/Not Resolved]
  - Local swelling [Not Recovered/Not Resolved]
  - Drug ineffective [Not Recovered/Not Resolved]
